FAERS Safety Report 20874628 (Version 5)
Quarter: 2022Q3

REPORT INFORMATION
  Report Type: Spontaneous
  Country: JP (occurrence: JP)
  Receive Date: 20220525
  Receipt Date: 20220911
  Transmission Date: 20221027
  Serious: Yes (Hospitalization, Other)
  Sender: FDA-Public Use
  Company Number: JP-NOVARTISPH-NVSJ2022JP090787

PATIENT
  Age: 62 Year
  Sex: Female
  Weight: 47.5 kg

DRUGS (7)
  1. COSENTYX [Suspect]
     Active Substance: SECUKINUMAB
     Indication: Axial spondyloarthritis
     Dosage: 150 MG
     Route: 058
     Dates: start: 20220325, end: 20220502
  2. COSENTYX [Suspect]
     Active Substance: SECUKINUMAB
     Dosage: 150 MG/4W
     Route: 058
     Dates: start: 20220618
  3. ALENDRONATE [Concomitant]
     Active Substance: ALENDRONATE SODIUM
     Indication: Osteoporosis
     Dosage: 35 MG/W
     Route: 048
     Dates: start: 20201009
  4. ALENDRONATE [Concomitant]
     Active Substance: ALENDRONATE SODIUM
     Indication: SAPHO syndrome
  5. NEXIUM [Concomitant]
     Active Substance: ESOMEPRAZOLE MAGNESIUM
     Indication: Prophylaxis
     Dosage: 10 MG, QD
     Route: 048
     Dates: start: 20210108
  6. LOXOPROFEN [Concomitant]
     Active Substance: LOXOPROFEN
     Indication: Axial spondyloarthritis
     Dosage: 60 MG, BID
     Route: 048
     Dates: start: 20201009
  7. FEXOFENADINE HYDROCHLORIDE [Concomitant]
     Active Substance: FEXOFENADINE HYDROCHLORIDE
     Indication: Rhinitis allergic
     Dosage: 60 MG, BID
     Route: 048

REACTIONS (3)
  - Thyroiditis subacute [Recovered/Resolved]
  - Pyrexia [Unknown]
  - Viral infection [Recovered/Resolved]

NARRATIVE: CASE EVENT DATE: 20220422
